FAERS Safety Report 23483789 (Version 1)
Quarter: 2024Q1

REPORT INFORMATION
  Report Type: Other
  Country: IN (occurrence: None)
  Receive Date: 20240205
  Receipt Date: 20240205
  Transmission Date: 20240409
  Serious: Yes (Death)
  Sender: FDA-Public Use
  Company Number: IN-ROCHE-3477726

PATIENT
  Age: 53 Year
  Sex: Female

DRUGS (1)
  1. TECENTRIQ [Suspect]
     Active Substance: ATEZOLIZUMAB
     Indication: Hepatocellular carcinoma
     Route: 041
     Dates: start: 20230915

REACTIONS (2)
  - Ill-defined disorder [Unknown]
  - Cardiac failure [Fatal]

NARRATIVE: CASE EVENT DATE: 20240130
